FAERS Safety Report 18042176 (Version 1)
Quarter: 2020Q3

REPORT INFORMATION
  Report Type: Spontaneous
  Country: JP (occurrence: JP)
  Receive Date: 20200720
  Receipt Date: 20200720
  Transmission Date: 20201103
  Serious: Yes (Other)
  Sender: FDA-Public Use
  Company Number: JP-009507513-2007JPN001176J

PATIENT
  Age: 84 Year
  Sex: Female

DRUGS (3)
  1. DOPS [Suspect]
     Active Substance: DROXIDOPA
     Dosage: UNK
     Route: 048
  2. MENESIT TABLETS ? 100 [Suspect]
     Active Substance: CARBIDOPA\LEVODOPA
     Dosage: UNK
     Route: 048
  3. AZILECT [Suspect]
     Active Substance: RASAGILINE MESYLATE
     Dosage: UNK
     Route: 048

REACTIONS (2)
  - Vanillyl mandelic acid urine increased [Unknown]
  - Phaeochromocytoma [Unknown]
